FAERS Safety Report 10763512 (Version 7)
Quarter: 2015Q2

REPORT INFORMATION
  Report Type: Spontaneous
  Country: US (occurrence: US)
  Receive Date: 20150204
  Receipt Date: 20150522
  Transmission Date: 20150821
  Serious: Yes (Hospitalization, Other)
  Sender: FDA-Public Use
  Company Number: US-009507513-1501USA011204

PATIENT
  Sex: Female
  Weight: 39.62 kg

DRUGS (6)
  1. FOSAMAX [Suspect]
     Active Substance: ALENDRONATE SODIUM
     Indication: OSTEOPOROSIS
     Dosage: 10 MG, UNK
     Route: 048
     Dates: start: 20000416, end: 200101
  2. FOSAMAX [Suspect]
     Active Substance: ALENDRONATE SODIUM
     Indication: SENILE OSTEOPOROSIS
     Dosage: 70 MG, QW
     Route: 048
     Dates: start: 20010124, end: 200712
  3. ALENDRONATE SODIUM. [Suspect]
     Active Substance: ALENDRONATE SODIUM
     Indication: OSTEOPOROSIS
     Dosage: 70 MG, QW
     Route: 048
     Dates: start: 20080214, end: 200809
  4. ALENDRONATE SODIUM. [Suspect]
     Active Substance: ALENDRONATE SODIUM
     Dosage: 70 MG, QW
     Route: 048
     Dates: start: 20081009, end: 200911
  5. ALENDRONATE SODIUM. [Suspect]
     Active Substance: ALENDRONATE SODIUM
     Dosage: 70 MG, QW
     Route: 048
     Dates: start: 20091229, end: 201203
  6. ALENDRONATE SODIUM. [Suspect]
     Active Substance: ALENDRONATE SODIUM
     Indication: OSTEOPOROSIS
     Dosage: 70 MG, QW
     Route: 048
     Dates: start: 2012, end: 20120612

REACTIONS (55)
  - Musculoskeletal disorder [Unknown]
  - Depression [Unknown]
  - Bacterial infection [Unknown]
  - Eczema [Unknown]
  - Hypertension [Unknown]
  - Hypoglycaemia [Unknown]
  - Foot operation [Unknown]
  - Fall [Unknown]
  - Fracture [Unknown]
  - Gastrooesophageal reflux disease [Unknown]
  - Intramedullary rod insertion [Unknown]
  - Spinal operation [Unknown]
  - Bronchitis [Unknown]
  - Rheumatoid arthritis [Unknown]
  - Cataract [Unknown]
  - Varicella [Unknown]
  - Procedural nausea [Unknown]
  - Procedural hypotension [Unknown]
  - Fracture [Unknown]
  - Iron deficiency anaemia [Unknown]
  - Fracture nonunion [Not Recovered/Not Resolved]
  - Impaired healing [Not Recovered/Not Resolved]
  - Foot fracture [Unknown]
  - Vitamin D deficiency [Unknown]
  - Infection [Unknown]
  - Peptic ulcer [Unknown]
  - Spinal column stenosis [Unknown]
  - Hyperglycaemia [Unknown]
  - Fracture [Unknown]
  - Spinal laminectomy [Unknown]
  - Gastric disorder [Unknown]
  - Foot fracture [Not Recovered/Not Resolved]
  - Connective tissue disorder [Unknown]
  - Intervertebral disc degeneration [Unknown]
  - Seizure [Unknown]
  - Asthma [Unknown]
  - Pain [Unknown]
  - Dermatitis atopic [Unknown]
  - Migraine [Unknown]
  - Fall [Unknown]
  - Blood disorder [Unknown]
  - Raynaud^s phenomenon [Unknown]
  - Foot fracture [Unknown]
  - Calcium deficiency [Unknown]
  - Restless legs syndrome [Unknown]
  - Psoriasis [Unknown]
  - Osteoarthritis [Unknown]
  - Anaemia macrocytic [Unknown]
  - Vitamin B12 deficiency [Unknown]
  - Spinal fusion surgery [Unknown]
  - Respiratory disorder [Unknown]
  - Fracture [Unknown]
  - Fracture [Unknown]
  - Femoral neck fracture [Unknown]
  - Fracture [Unknown]

NARRATIVE: CASE EVENT DATE: 2000
